FAERS Safety Report 6286228-7 (Version None)
Quarter: 2009Q3

REPORT INFORMATION
  Report Type: 
  Country: None (occurrence: None)
  Receive Date: 20090716
  Receipt Date: 20080611
  Transmission Date: 20100115
  Serious: No
  Sender: FDA-Public Use
  Company Number: 2007BI016584

PATIENT
  Sex: Female
  Weight: 57.6068 kg

DRUGS (3)
  1. AVONEX [Suspect]
     Indication: MULTIPLE SCLEROSIS
     Dosage: 30 UG;QW; IM
     Route: 030
     Dates: start: 19980101
  2. PRENATAL VITAMINS (CON.) [Concomitant]
  3. OMEGA 3 FISH OIL (CON.) [Concomitant]

REACTIONS (3)
  - FATIGUE [None]
  - POLLAKIURIA [None]
  - VOMITING IN PREGNANCY [None]
